FAERS Safety Report 7384714-X (Version None)
Quarter: 2011Q1

REPORT INFORMATION
  Report Type: 
  Country: None (occurrence: None)
  Receive Date: 20110330
  Receipt Date: 20110317
  Transmission Date: 20110831
  Serious: Yes (Hospitalization)
  Sender: FDA-Public Use
  Company Number: PHHY2011US22203

PATIENT
  Sex: Female

DRUGS (6)
  1. INDERAL [Concomitant]
  2. DIGOXIN [Concomitant]
  3. VITAMIN D [Concomitant]
  4. VALTURNA [Suspect]
     Indication: HYPERTENSION
     Dosage: 150/160 MG, ONE PER DAY
  5. LORAZEPAM [Concomitant]
  6. DEMEROL [Suspect]

REACTIONS (2)
  - SCIATICA [None]
  - HALLUCINATION [None]
